FAERS Safety Report 4353552-4 (Version None)
Quarter: 2004Q2

REPORT INFORMATION
  Report Type: 
  Country: None (occurrence: None)
  Receive Date: 20040430
  Receipt Date: 20040420
  Transmission Date: 20050107
  Serious: Yes (Hospitalization)
  Sender: FDA-Public Use
  Company Number: 430006L04JPN

PATIENT
  Age: 70 Year
  Sex: Female

DRUGS (2)
  1. NOVANTRONE [Suspect]
     Indication: ACUTE MYELOID LEUKAEMIA
  2. CYTARABINE [Suspect]
     Indication: ACUTE MYELOID LEUKAEMIA

REACTIONS (7)
  - BONE MARROW DEPRESSION [None]
  - DISEASE RECURRENCE [None]
  - FALL [None]
  - GRAFT VERSUS HOST DISEASE [None]
  - PNEUMONIA [None]
  - SPINAL COMPRESSION FRACTURE [None]
  - STEM CELL TRANSPLANT [None]
